FAERS Safety Report 11292293 (Version 6)
Quarter: 2016Q1

REPORT INFORMATION
  Report Type: Spontaneous
  Country: US (occurrence: US)
  Receive Date: 20150722
  Receipt Date: 20160120
  Transmission Date: 20160525
  Serious: Yes (Hospitalization, Disabling, Other)
  Sender: FDA-Public Use
  Company Number: US-009507513-1204USA02853

PATIENT
  Sex: Female
  Weight: 79.37 kg

DRUGS (3)
  1. FOSAMAX [Suspect]
     Active Substance: ALENDRONATE SODIUM
     Indication: OSTEOPOROSIS
     Dosage: UNK
     Route: 048
     Dates: start: 1995
  2. ALENDRONATE SODIUM. [Suspect]
     Active Substance: ALENDRONATE SODIUM
     Indication: OSTEOPOROSIS
     Dosage: 70 MG, UNK
     Route: 048
     Dates: start: 20090113, end: 20110126
  3. FOSAMAX [Suspect]
     Active Substance: ALENDRONATE SODIUM
     Dosage: 70 MG, QW
     Route: 048
     Dates: start: 20031211, end: 20090112

REACTIONS (52)
  - Femur fracture [Recovered/Resolved]
  - Femur fracture [Not Recovered/Not Resolved]
  - Femur fracture [Not Recovered/Not Resolved]
  - Hand fracture [Unknown]
  - Fall [Unknown]
  - Bursitis [Unknown]
  - Synovial cyst [Unknown]
  - Urinary tract infection [Recovered/Resolved]
  - Enchondromatosis [Unknown]
  - Restless legs syndrome [Unknown]
  - Blepharoplasty [Unknown]
  - Osteopenia [Unknown]
  - Spinal osteoarthritis [Unknown]
  - Asthma [Not Recovered/Not Resolved]
  - Poor quality sleep [Unknown]
  - Fractured ischium [Unknown]
  - Synovial cyst [Unknown]
  - Panic attack [Recovered/Resolved]
  - Foot fracture [Unknown]
  - Foot fracture [Unknown]
  - Drug ineffective [Unknown]
  - Bone disorder [Not Recovered/Not Resolved]
  - Femur fracture [Recovered/Resolved]
  - Cough [Not Recovered/Not Resolved]
  - Generalised anxiety disorder [Unknown]
  - Neck pain [Unknown]
  - Postoperative wound complication [Unknown]
  - Fracture delayed union [Unknown]
  - Enchondromatosis [Unknown]
  - Chronic obstructive pulmonary disease [Not Recovered/Not Resolved]
  - Osteopenia [Unknown]
  - Upper-airway cough syndrome [Unknown]
  - Fracture delayed union [Unknown]
  - Chest pain [Recovered/Resolved]
  - Hypercholesterolaemia [Not Recovered/Not Resolved]
  - Osteoarthritis [Unknown]
  - Spinal osteoarthritis [Unknown]
  - Chondrocalcinosis [Unknown]
  - Renal disorder [Unknown]
  - Anaemia postoperative [Unknown]
  - Medical device removal [Unknown]
  - Ligament sprain [Unknown]
  - Foot fracture [Unknown]
  - Varicose vein [Unknown]
  - Sleep apnoea syndrome [Unknown]
  - Anaemia [Unknown]
  - Hand fracture [Unknown]
  - Gastrooesophageal reflux disease [Unknown]
  - Vasculitis [Unknown]
  - Osteoarthritis [Unknown]
  - Osteopenia [Unknown]
  - Muscle spasms [Unknown]

NARRATIVE: CASE EVENT DATE: 2000
